FAERS Safety Report 4890127-2 (Version None)
Quarter: 2006Q1

REPORT INFORMATION
  Report Type: 
  Country: None (occurrence: None)
  Receive Date: 20060124
  Receipt Date: 20051201
  Transmission Date: 20060701
  Serious: No
  Sender: FDA-Public Use
  Company Number: JP-ABBOTT-05P-087-0318529-00

PATIENT
  Sex: Female

DRUGS (10)
  1. SEVOFLURANE [Suspect]
     Indication: ANAESTHESIA
     Route: 055
     Dates: start: 20050627, end: 20050627
  2. LIDOCAINE 2% [Suspect]
     Indication: ANAESTHESIA
     Dosage: 4 TO 6 ML/HOUR CONTINUOUS INFUSION
     Route: 008
     Dates: start: 20050627, end: 20050627
  3. LIDOCAINE 2% [Suspect]
     Dosage: 7 ML BOLUS
     Route: 008
  4. NITROUS OXIDE W/ OXYGEN [Concomitant]
     Indication: ANAESTHESIA
     Route: 055
     Dates: start: 20050627, end: 20050627
  5. OXYGEN [Concomitant]
     Indication: ANAESTHESIA
     Route: 055
     Dates: start: 20050627, end: 20050627
  6. THIOPENTAL SODIUM [Concomitant]
     Indication: SEDATION
     Route: 042
     Dates: start: 20050627, end: 20050627
  7. VECURONIUM BROMIDE [Concomitant]
     Indication: MUSCLE RELAXANT THERAPY
     Route: 042
     Dates: start: 20050627, end: 20050627
  8. EPHEDRINE [Concomitant]
     Indication: BLOOD PRESSURE DECREASED
     Route: 042
     Dates: start: 20050627, end: 20050627
  9. ESMOLOL HCL [Concomitant]
     Indication: TACHYCARDIA
     Route: 042
     Dates: start: 20050627, end: 20050627
  10. ATROPINE [Concomitant]
     Indication: PREMEDICATION
     Route: 030
     Dates: start: 20050617, end: 20050617

REACTIONS (1)
  - DELAYED RECOVERY FROM ANAESTHESIA [None]
